FAERS Safety Report 11033469 (Version 1)
Quarter: 2015Q2

REPORT INFORMATION
  Report Type: Report from Study
  Country: RO (occurrence: RO)
  Receive Date: 20150415
  Receipt Date: 20150415
  Transmission Date: 20150821
  Serious: Yes (Hospitalization)
  Sender: FDA-Public Use
  Company Number: RO-ABBVIE-15P-135-1374351-00

PATIENT
  Age: 61 Year
  Sex: Male

DRUGS (4)
  1. DUODOPA [Suspect]
     Active Substance: CARBIDOPA\LEVODOPA
     Indication: PARKINSON^S DISEASE
     Dosage: 16/24; MD: 7.5 ML; CR: 4.5 ML/H, ED: 4.5 ML
     Route: 050
     Dates: start: 20140616
  2. PENTOXI [Concomitant]
     Indication: CARDIOVASCULAR DISORDER
     Route: 048
  3. ISIKOM [Concomitant]
     Indication: PARKINSON^S DISEASE
     Route: 048
  4. AZILECT [Concomitant]
     Active Substance: RASAGILINE MESYLATE
     Indication: PARKINSON^S DISEASE
     Route: 048

REACTIONS (14)
  - Emotional disorder [Recovering/Resolving]
  - Feelings of worthlessness [Recovering/Resolving]
  - Anger [Recovering/Resolving]
  - Generalised anxiety disorder [Recovering/Resolving]
  - Unevaluable event [Recovering/Resolving]
  - Asthenia [Recovering/Resolving]
  - Depression [Recovering/Resolving]
  - Performance status decreased [Recovering/Resolving]
  - Social problem [Recovering/Resolving]
  - Insomnia [Recovering/Resolving]
  - Irritability [Recovering/Resolving]
  - Impatience [Recovering/Resolving]
  - Aphasia [Recovering/Resolving]
  - Anxiety disorder [Recovering/Resolving]

NARRATIVE: CASE EVENT DATE: 20150324
